FAERS Safety Report 8802035 (Version 1)
Quarter: 2012Q4

REPORT INFORMATION
  Report Type: 
  Country: US (occurrence: US)
  Receive Date: 20120921
  Receipt Date: 20120921
  Transmission Date: 20130627
  Serious: Yes (Hospitalization)
  Sender: FDA-Public Use
  Company Number: US-ASTRAZENECA-2012SE71454

PATIENT
  Age: 81 Year
  Sex: Female
  Weight: 62.6 kg

DRUGS (4)
  1. ARIMIDEX [Suspect]
     Indication: BREAST CANCER
     Route: 048
     Dates: start: 2006, end: 2011
  2. SYNTHROID [Concomitant]
     Indication: HYPOTHYROIDISM
     Route: 048
     Dates: start: 201208
  3. ZOCOR [Concomitant]
     Indication: BLOOD CHOLESTEROL INCREASED
     Route: 048
     Dates: start: 2009
  4. BENICAR [Concomitant]
     Indication: HYPERTENSION
     Route: 048
     Dates: start: 2008

REACTIONS (7)
  - Syncope [Unknown]
  - Hypertension [Unknown]
  - Blood uric acid increased [Unknown]
  - Hypothyroidism [Unknown]
  - Migraine [Unknown]
  - Blood cholesterol increased [Unknown]
  - Osteoporosis [Unknown]
